FAERS Safety Report 21331969 (Version 2)
Quarter: 2022Q3

REPORT INFORMATION
  Report Type: Spontaneous
  Country: US (occurrence: US)
  Receive Date: 20220914
  Receipt Date: 20220923
  Transmission Date: 20221027
  Serious: No
  Sender: FDA-Public Use
  Company Number: US-BRISTOL-MYERS SQUIBB COMPANY-2022-105663

PATIENT
  Age: 69 Year
  Sex: Female

DRUGS (1)
  1. REVLIMID [Suspect]
     Active Substance: LENALIDOMIDE
     Indication: Plasma cell myeloma
     Route: 048
     Dates: start: 202208

REACTIONS (9)
  - Asthenia [Unknown]
  - Dyspnoea [Unknown]
  - Peripheral swelling [Unknown]
  - Eye swelling [Unknown]
  - Dizziness [Unknown]
  - Insomnia [Unknown]
  - Nausea [Recovering/Resolving]
  - Glucose tolerance impaired [Unknown]
  - Blood glucose decreased [Unknown]
